FAERS Safety Report 9393735 (Version 5)
Quarter: 2014Q1

REPORT INFORMATION
  Report Type: Spontaneous
  Country: US (occurrence: US)
  Receive Date: 20130710
  Receipt Date: 20140103
  Transmission Date: 20141002
  Serious: Yes (Death, Hospitalization, Other)
  Sender: FDA-Public Use
  Company Number: US-MERCK-1307USA004634

PATIENT
  Sex: Female
  Weight: 71.66 kg

DRUGS (2)
  1. FOSAMAX [Suspect]
     Indication: OSTEOPENIA
     Dosage: 10 MG, UNK
     Route: 048
     Dates: start: 2000
  2. FOSAMAX [Suspect]
     Dosage: 70 MG, UNK
     Route: 048
     Dates: end: 2008

REACTIONS (20)
  - Stress fracture [Unknown]
  - Intramedullary rod insertion [Unknown]
  - Medical device removal [Unknown]
  - Internal fixation of fracture [Unknown]
  - Bursitis [Unknown]
  - Respiratory failure [Fatal]
  - Chronic obstructive pulmonary disease [Unknown]
  - Lower limb fracture [Unknown]
  - Bone disorder [Unknown]
  - Cardiac failure congestive [Unknown]
  - Pneumonia [Unknown]
  - Foot fracture [Unknown]
  - Foot deformity [Unknown]
  - Hypertension [Unknown]
  - Peptic ulcer [Unknown]
  - Arthritis [Unknown]
  - Hyperthyroidism [Unknown]
  - Chronic obstructive pulmonary disease [Unknown]
  - Pain [Unknown]
  - Gastrooesophageal reflux disease [Unknown]
